FAERS Safety Report 6299701-2 (Version None)
Quarter: 2009Q3

REPORT INFORMATION
  Report Type: 
  Country: None (occurrence: None)
  Receive Date: 20090806
  Receipt Date: 20090728
  Transmission Date: 20100115
  Serious: Yes (Hospitalization)
  Sender: FDA-Public Use
  Company Number: US-PFIZER INC-2009157095

PATIENT
  Sex: Male
  Weight: 107.1 kg

DRUGS (5)
  1. SUTENT [Suspect]
     Indication: RENAL CELL CARCINOMA
     Dosage: 37.5 MG, 1X/DAY
     Route: 048
     Dates: start: 20080606, end: 20090212
  2. GEMCITABINE [Suspect]
     Indication: RENAL CELL CARCINOMA
     Dosage: 1000 MG/M2, ON DAY 1 AND DAY 8 EVERY 21 DAYS
     Dates: start: 20080606, end: 20090109
  3. LASIX [Concomitant]
     Dosage: 20 MG, 1X/DAY
     Route: 048
     Dates: start: 20090102, end: 20090123
  4. RITALIN [Concomitant]
     Dosage: 10 MG, 3X/DAY
     Route: 048
     Dates: start: 20080926
  5. TOPROL-XL [Concomitant]
     Dosage: 50 MG, 1X/DAY
     Route: 048
     Dates: start: 20090528

REACTIONS (2)
  - FATIGUE [None]
  - OEDEMA [None]
